FAERS Safety Report 7824961-3 (Version None)
Quarter: 2011Q4

REPORT INFORMATION
  Report Type: 
  Country: None (occurrence: None)
  Receive Date: 20111019
  Receipt Date: 20110314
  Transmission Date: 20120403
  Serious: No
  Sender: FDA-Public Use
  Company Number: US-BRISTOL-MYERS SQUIBB COMPANY-15608367

PATIENT
  Age: 62 Year
  Sex: Female
  Weight: 82 kg

DRUGS (7)
  1. PANTOPRAZOLE [Concomitant]
  2. HYZAAR [Concomitant]
  3. PAXIL [Concomitant]
  4. AVALIDE [Suspect]
     Dosage: 1DF: 300/12.5 MG, HALF TABLET DURING STRESS HALF TAB BID
  5. SYNTHROID [Concomitant]
  6. VYTORIN [Concomitant]
  7. PLAVIX [Concomitant]

REACTIONS (1)
  - SOMNOLENCE [None]
